FAERS Safety Report 22285775 (Version 2)
Quarter: 2023Q2

REPORT INFORMATION
  Report Type: Report from Study
  Country: CH (occurrence: CH)
  Receive Date: 20230504
  Receipt Date: 20230524
  Transmission Date: 20230721
  Serious: Yes (Hospitalization)
  Sender: FDA-Public Use
  Company Number: CH-ABBVIE-4751726

PATIENT
  Age: 58 Year
  Sex: Male
  Weight: 85 kg

DRUGS (48)
  1. SKYRIZI [Suspect]
     Active Substance: RISANKIZUMAB-RZAA
     Indication: Psoriasis
     Route: 058
     Dates: start: 20220120, end: 20221007
  2. SKYRIZI [Suspect]
     Active Substance: RISANKIZUMAB-RZAA
     Route: 058
     Dates: start: 20230406
  3. Acidum acetylsalicylicum (Aspirin Cardio) [Concomitant]
     Indication: Product used for unknown indication
     Route: 048
  4. CLINDAMYCIN [Concomitant]
     Active Substance: CLINDAMYCIN
     Indication: Product used for unknown indication
     Route: 048
     Dates: end: 20230404
  5. CLINDAMYCIN [Concomitant]
     Active Substance: CLINDAMYCIN
     Indication: Product used for unknown indication
     Dosage: TIME INTERVAL: 0.33333333 DAYS
     Route: 048
     Dates: start: 20230308, end: 20230427
  6. Clindamycinum ut Clindamycini hydrochloridum (Clindamycin) [Concomitant]
     Indication: Product used for unknown indication
     Route: 048
     Dates: end: 20230404
  7. Clindamycinum ut Clindamycini hydrochloridum (Clindamycin) [Concomitant]
     Indication: Product used for unknown indication
     Dosage: TIME INTERVAL: 0.33333333 DAYS
     Route: 048
     Dates: start: 20230308, end: 20230427
  8. XYZAL [Concomitant]
     Active Substance: LEVOCETIRIZINE DIHYDROCHLORIDE
     Indication: Product used for unknown indication
  9. Mometasoni-17-furoas(Monovo Creme) [Concomitant]
     Indication: Product used for unknown indication
     Dosage: 1MG/G (TUBE 70G)
  10. SODIUM BICARBONATE [Concomitant]
     Active Substance: SODIUM BICARBONATE
     Indication: Product used for unknown indication
  11. Cefepimum ut Cefepimi dihydrochloridum monohydricum (Cefepime) [Concomitant]
     Indication: Product used for unknown indication
     Route: 042
     Dates: start: 20230304, end: 20230307
  12. Cefepimum ut Cefepimi dihydrochloridum monohydricum (Cefepime) [Concomitant]
     Indication: Product used for unknown indication
     Dosage: 2 GRAM
     Route: 042
     Dates: start: 20230303, end: 20230303
  13. Cefepimum ut Cefepimi dihydrochloridum monohydricum (Cefepime) [Concomitant]
     Indication: Product used for unknown indication
     Route: 042
     Dates: start: 20230218, end: 20230302
  14. CEFEPIME [Concomitant]
     Active Substance: CEFEPIME HYDROCHLORIDE
     Indication: Product used for unknown indication
  15. Insulin Novo(Rapid Flex Touch) [Concomitant]
     Indication: Product used for unknown indication
     Dosage: 100 E/ML
  16. VITAMINS [Concomitant]
     Active Substance: VITAMINS
     Indication: Product used for unknown indication
  17. Levocetirizine (Xyzal) [Concomitant]
     Indication: Product used for unknown indication
     Route: 048
  18. DAPAGLIFLOZIN [Concomitant]
     Active Substance: DAPAGLIFLOZIN
     Indication: Product used for unknown indication
  19. APIXABAN [Concomitant]
     Active Substance: APIXABAN
     Indication: Product used for unknown indication
     Route: 048
  20. UREA [Concomitant]
     Active Substance: UREA
     Indication: Product used for unknown indication
  21. TRESIBA [Concomitant]
     Active Substance: INSULIN DEGLUDEC
     Indication: Product used for unknown indication
     Dosage: 100 E/ML
  22. Dalteparinum natricum(Fragmin) [Concomitant]
     Indication: Product used for unknown indication
     Dosage: 5000 IU/ 0.2ML
  23. Atorvastatin (Pfizer) [Concomitant]
     Indication: Product used for unknown indication
     Route: 048
  24. CEFEPIME HYDROCHLORIDE [Concomitant]
     Active Substance: CEFEPIME HYDROCHLORIDE
     Indication: Product used for unknown indication
     Dosage: 2 GRAM
     Route: 042
     Dates: start: 20230303, end: 20230303
  25. CEFEPIME HYDROCHLORIDE [Concomitant]
     Active Substance: CEFEPIME HYDROCHLORIDE
     Indication: Product used for unknown indication
     Route: 042
     Dates: start: 20230304, end: 20230307
  26. CEFEPIME HYDROCHLORIDE [Concomitant]
     Active Substance: CEFEPIME HYDROCHLORIDE
     Indication: Product used for unknown indication
     Route: 042
     Dates: start: 20230218, end: 20230302
  27. Candesartanum cilexetilum (Candesartan Sandoz) [Concomitant]
     Indication: Product used for unknown indication
     Route: 048
  28. ASPIRIN [Concomitant]
     Active Substance: ASPIRIN
     Indication: Product used for unknown indication
  29. Ciprofloxacinum ut Ciprofloxacini hydrochloridum (Ciprofloxacin) [Concomitant]
     Indication: Product used for unknown indication
     Route: 048
     Dates: end: 20230404
  30. Ciprofloxacinum ut Ciprofloxacini hydrochloridum (Ciprofloxacin) [Concomitant]
     Indication: Product used for unknown indication
     Route: 048
     Dates: start: 20230308, end: 20230427
  31. ELIQUIS [Concomitant]
     Active Substance: APIXABAN
     Indication: Product used for unknown indication
  32. Cetaphil PRO IRRITATION CONTROL PRURI [Concomitant]
     Indication: Product used for unknown indication
  33. ATORVASTATIN [Concomitant]
     Active Substance: ATORVASTATIN
     Indication: Product used for unknown indication
  34. Becozym forte [Concomitant]
     Indication: Product used for unknown indication
     Route: 048
  35. DAFALGAN [Concomitant]
     Active Substance: ACETAMINOPHEN
     Indication: Product used for unknown indication
  36. Paracetamol (DAFALGAN) [Concomitant]
     Indication: Product used for unknown indication
     Route: 048
  37. CANDESARTAN [Concomitant]
     Active Substance: CANDESARTAN
     Indication: Product used for unknown indication
  38. TRESIBA [Concomitant]
     Active Substance: INSULIN DEGLUDEC
     Indication: Product used for unknown indication
     Dosage: 100 E/ML
  39. CETAPHIL DAILY FACIAL MOISTURIZER WITH SUNCREEN SPF 50 [Concomitant]
     Active Substance: OCTINOXATE\OCTISALATE\OCTOCRYLENE\OXYBENZONE\TITANIUM DIOXIDE
     Indication: Product used for unknown indication
  40. Dapagliflozin-Monohydrat-Propandiol (Forxiga) [Concomitant]
     Indication: Product used for unknown indication
     Route: 048
  41. FRAGMIN [Concomitant]
     Active Substance: DALTEPARIN SODIUM
     Indication: Product used for unknown indication
     Dosage: 5000 IU/ 0.2ML
  42. EXCIPIAL U LIPOLOTIO [Concomitant]
     Indication: Product used for unknown indication
  43. CIPROFLOXACIN [Concomitant]
     Active Substance: CIPROFLOXACIN
     Indication: Product used for unknown indication
     Route: 048
     Dates: start: 20230308, end: 20230427
  44. CIPROFLOXACIN [Concomitant]
     Active Substance: CIPROFLOXACIN
     Indication: Product used for unknown indication
     Route: 048
     Dates: end: 20230404
  45. Cefepim Dihydrochloridmonohydrat (Cefepime OrPha) [Concomitant]
     Indication: Product used for unknown indication
  46. MONOVO [Concomitant]
     Indication: Product used for unknown indication
     Dosage: 1MG/G (TUBE 70G)
  47. Natrii hydrogencarbonas (Nephrotrans) [Concomitant]
     Indication: Product used for unknown indication
     Route: 048
  48. NOVORAPID [Concomitant]
     Active Substance: INSULIN ASPART
     Indication: Product used for unknown indication
     Dosage: 100 E/ML

REACTIONS (78)
  - Soft tissue infection [Not Recovered/Not Resolved]
  - Red blood cell count decreased [Unknown]
  - Red blood cell count decreased [Unknown]
  - Haemoglobin decreased [Unknown]
  - Unevaluable event [Unknown]
  - Blood creatinine increased [Unknown]
  - Blood bicarbonate decreased [Unknown]
  - Haemoglobin decreased [Unknown]
  - Blood bicarbonate decreased [Unknown]
  - Blood bicarbonate decreased [Unknown]
  - Localised infection [Recovering/Resolving]
  - Blood potassium increased [Unknown]
  - Blood creatinine increased [Unknown]
  - Foot amputation [Not Recovered/Not Resolved]
  - Haematocrit decreased [Unknown]
  - Blood potassium increased [Unknown]
  - Haematocrit decreased [Unknown]
  - Acute kidney injury [Unknown]
  - Red blood cell count decreased [Unknown]
  - Haematocrit decreased [Unknown]
  - Osteomyelitis [Unknown]
  - Haemoglobin decreased [Unknown]
  - C-reactive protein increased [Unknown]
  - C-reactive protein increased [Unknown]
  - Blood creatinine increased [Unknown]
  - Haematocrit decreased [Unknown]
  - Carbon dioxide decreased [Unknown]
  - Diabetes mellitus [Unknown]
  - Haematocrit decreased [Unknown]
  - Red blood cell count decreased [Unknown]
  - Red blood cell count decreased [Unknown]
  - Base excess increased [Unknown]
  - Haemoglobin decreased [Unknown]
  - Protein urine present [Unknown]
  - Blood urea increased [Unknown]
  - Red blood cell count decreased [Unknown]
  - Haematocrit decreased [Unknown]
  - Haematocrit decreased [Unknown]
  - Blood creatinine increased [Unknown]
  - Blood potassium increased [Unknown]
  - Blood creatinine increased [Unknown]
  - Blood urea increased [Unknown]
  - Red blood cell count decreased [Unknown]
  - Lisfranc fracture [Unknown]
  - Haemoglobin decreased [Unknown]
  - Blood pH decreased [Unknown]
  - Blood urea increased [Unknown]
  - Osteomyelitis [Unknown]
  - C-reactive protein increased [Unknown]
  - Blood urea increased [Unknown]
  - Haemoglobin decreased [Unknown]
  - Blood creatinine increased [Unknown]
  - Blood urea increased [Unknown]
  - Blood potassium increased [Unknown]
  - Carbon dioxide decreased [Unknown]
  - Skin ulcer [Unknown]
  - PCO2 decreased [Unknown]
  - Urine albumin/creatinine ratio increased [Unknown]
  - Blood potassium increased [Unknown]
  - Haemoglobin decreased [Unknown]
  - Blood creatinine increased [Unknown]
  - International normalised ratio decreased [Unknown]
  - Urea urine decreased [Unknown]
  - Blood creatinine increased [Unknown]
  - Chronic kidney disease [Recovering/Resolving]
  - Septic shock [Unknown]
  - Haemoglobin decreased [Unknown]
  - Base excess increased [Unknown]
  - Albumin urine present [Unknown]
  - Blood potassium increased [Unknown]
  - International normalised ratio decreased [Unknown]
  - Diabetic foot [Unknown]
  - Abscess soft tissue [Not Recovered/Not Resolved]
  - Haematocrit decreased [Unknown]
  - Debridement [Unknown]
  - Hospitalisation [Recovered/Resolved]
  - Blood potassium increased [Unknown]
  - Staphylococcal infection [Unknown]

NARRATIVE: CASE EVENT DATE: 20221126
